FAERS Safety Report 21489437 (Version 1)
Quarter: 2022Q4

REPORT INFORMATION
  Report Type: Spontaneous
  Country: GB (occurrence: GB)
  Receive Date: 20221021
  Receipt Date: 20221021
  Transmission Date: 20230113
  Serious: Yes (Other)
  Sender: FDA-Public Use
  Company Number: None

PATIENT
  Age: 52 Year
  Sex: Female

DRUGS (9)
  1. MONTELUKAST SODIUM [Suspect]
     Active Substance: MONTELUKAST SODIUM
     Indication: Adverse drug reaction
     Dosage: 10MG ONCE IN THE EVENING
     Dates: end: 20221014
  2. DYDROGESTERONE\ESTRADIOL [Concomitant]
     Active Substance: DYDROGESTERONE\ESTRADIOL
     Indication: Adverse drug reaction
     Dosage: UNK
     Dates: start: 2007
  3. BUDESONIDE\FORMOTEROL FUMARATE [Concomitant]
     Active Substance: BUDESONIDE\FORMOTEROL FUMARATE
     Indication: Adverse drug reaction
     Dosage: UNK
     Dates: end: 202210
  4. BECLOMETHASONE\FORMOTEROL [Concomitant]
     Active Substance: BECLOMETHASONE\FORMOTEROL
     Indication: Adverse drug reaction
     Dosage: UNK
     Dates: start: 2020, end: 202210
  5. LOSARTAN POTASSIUM [Concomitant]
     Active Substance: LOSARTAN POTASSIUM
     Indication: Adverse drug reaction
     Dosage: UNK
     Dates: end: 2014
  6. LANSOPRAZOLE [Concomitant]
     Active Substance: LANSOPRAZOLE
     Indication: Adverse drug reaction
     Dosage: UNK
  7. ALBUTEROL [Concomitant]
     Active Substance: ALBUTEROL
     Indication: Adverse drug reaction
     Dosage: UNK
     Dates: end: 202210
  8. SIMVASTATIN [Concomitant]
     Active Substance: SIMVASTATIN
     Indication: Blood cholesterol increased
     Dosage: UNK
     Dates: start: 2015
  9. VENTOLIN [Concomitant]
     Active Substance: ALBUTEROL SULFATE
     Indication: Adverse drug reaction
     Dosage: UNK
     Dates: start: 2019, end: 202210

REACTIONS (6)
  - Insomnia [Not Recovered/Not Resolved]
  - Depression [Not Recovered/Not Resolved]
  - Irritability [Not Recovered/Not Resolved]
  - Depression suicidal [Recovering/Resolving]
  - Nightmare [Recovering/Resolving]
  - Anger [Not Recovered/Not Resolved]

NARRATIVE: CASE EVENT DATE: 20221010
